FAERS Safety Report 25484575 (Version 1)
Quarter: 2025Q2

REPORT INFORMATION
  Report Type: Spontaneous
  Country: US (occurrence: None)
  Receive Date: 20250626
  Receipt Date: 20250626
  Transmission Date: 20250717
  Serious: Yes (Disabling)
  Sender: FDA-CTU
  Company Number: None

PATIENT
  Age: 70 Year
  Sex: Male
  Weight: 80.1 kg

DRUGS (1)
  1. LEQVIO [Suspect]
     Active Substance: INCLISIRAN SODIUM
     Indication: Blood cholesterol increased
     Route: 058

REACTIONS (10)
  - Back pain [None]
  - Myalgia [None]
  - Arthralgia [None]
  - Joint stiffness [None]
  - Muscle atrophy [None]
  - Muscle rupture [None]
  - Neuropathy peripheral [None]
  - Pain in extremity [None]
  - Arthralgia [None]
  - Sleep disorder [None]

NARRATIVE: CASE EVENT DATE: 20250609
